FAERS Safety Report 7275675 (Version 3)
Quarter: 2013Q4

REPORT INFORMATION
  Report Type: Spontaneous
  Country: NZ (occurrence: NZ)
  Receive Date: 20100211
  Receipt Date: 20131227
  Transmission Date: 20140711
  Serious: No
  Sender: FDA-Public Use
  Company Number: NZ-JNJFOC-20100111204

PATIENT
  Sex: Female

DRUGS (2)
  1. DUROGESIC [Suspect]
     Indication: PRODUCT USED FOR UNKNOWN INDICATION
     Route: 062
  2. UNKNOWN MEDICATION [Concomitant]
     Indication: BREAKTHROUGH PAIN
     Route: 065

REACTIONS (4)
  - Application site irritation [Unknown]
  - Wrong technique in drug usage process [Unknown]
  - Product quality issue [Unknown]
  - Wrong technique in drug usage process [Unknown]
